FAERS Safety Report 8544722-X (Version None)
Quarter: 2012Q3

REPORT INFORMATION
  Report Type: 
  Country: None (occurrence: None)
  Receive Date: 20120727
  Receipt Date: 20120716
  Transmission Date: 20120928
  Serious: Yes (Other)
  Sender: FDA-Public Use
  Company Number: CZ-BRISTOL-MYERS SQUIBB COMPANY-16772154

PATIENT
  Age: 42 Year
  Sex: Female

DRUGS (7)
  1. ONDANSETRON [Suspect]
     Indication: PREMEDICATION
     Route: 042
  2. RANITIDINE [Concomitant]
     Indication: PREMEDICATION
     Route: 042
  3. DEXAMETHASONE [Suspect]
     Indication: PREMEDICATION
     Route: 042
  4. PACLITAXEL [Suspect]
     Indication: BREAST CANCER
     Dosage: 1 DAY,1 HOUR FOR 12 WEEKS.
     Route: 042
  5. DOXORUBICIN HYDROCHLORIDE [Suspect]
     Indication: BREAST CANCER
  6. CYCLOPHOSPHAMIDE [Suspect]
     Indication: BREAST CANCER
     Route: 042
  7. BISULEPIN HCL [Suspect]
     Indication: PREMEDICATION
     Route: 042

REACTIONS (2)
  - SUICIDAL IDEATION [None]
  - HALLUCINATION [None]
